FAERS Safety Report 13358650 (Version 2)
Quarter: 2017Q2

REPORT INFORMATION
  Report Type: Report from Study
  Country: US (occurrence: US)
  Receive Date: 20170322
  Receipt Date: 20170424
  Transmission Date: 20170830
  Serious: Yes (Hospitalization, Other)
  Sender: FDA-Public Use
  Company Number: US-GILEAD-2017-0263476

PATIENT
  Age: 42 Year
  Sex: Female

DRUGS (2)
  1. AMBRISENTAN [Suspect]
     Active Substance: AMBRISENTAN
     Indication: PULMONARY ARTERIAL HYPERTENSION
     Dosage: 10 MG, QD
     Route: 065
     Dates: start: 20151125
  2. NEXPLANON [Suspect]
     Active Substance: ETONOGESTREL
     Indication: CONTRACEPTIVE IMPLANT
     Route: 065
     Dates: end: 20150316

REACTIONS (5)
  - Transfusion [Unknown]
  - Blood iron decreased [Unknown]
  - Medical device removal [Unknown]
  - Thrombosis [Recovered/Resolved]
  - Female sterilisation [Recovered/Resolved]

NARRATIVE: CASE EVENT DATE: 20170316
